FAERS Safety Report 5468272-2 (Version None)
Quarter: 2007Q3

REPORT INFORMATION
  Report Type: 
  Country: None (occurrence: None)
  Receive Date: 20070926
  Receipt Date: 20070912
  Transmission Date: 20080115
  Serious: Yes (Hospitalization)
  Sender: FDA-Public Use
  Company Number: US-ELI_LILLY_AND_COMPANY-US200709002694

PATIENT
  Age: 52 Year
  Sex: Male

DRUGS (2)
  1. CYMBALTA [Suspect]
     Dosage: 20 MG, UNK
     Dates: start: 20061001, end: 20070701
  2. CYMBALTA [Suspect]
     Dosage: 40 MG, UNK
     Dates: start: 20070701, end: 20070901

REACTIONS (1)
  - HEPATITIS [None]
